FAERS Safety Report 24935598 (Version 1)
Quarter: 2025Q1

REPORT INFORMATION
  Report Type: Report from Study
  Country: US (occurrence: US)
  Receive Date: 20250206
  Receipt Date: 20250206
  Transmission Date: 20250409
  Serious: Yes (Hospitalization, Other)
  Sender: EXELIXIS
  Company Number: US-EXELIXIS-CABO-24079309

PATIENT
  Age: 82 Year
  Sex: Female

DRUGS (13)
  1. CABOMETYX [Suspect]
     Active Substance: CABOZANTINIB S-MALATE
     Indication: Neuroendocrine tumour
     Dosage: 40 MG, QD
     Dates: start: 20240628
  2. CABOMETYX [Suspect]
     Active Substance: CABOZANTINIB S-MALATE
     Dates: start: 20240804, end: 20240805
  3. CABOMETYX [Suspect]
     Active Substance: CABOZANTINIB S-MALATE
     Dosage: 40 MG, QD
     Dates: start: 20240806
  4. CABOMETYX [Suspect]
     Active Substance: CABOZANTINIB S-MALATE
     Dosage: 40 MG, QD
  5. CABOMETYX [Suspect]
     Active Substance: CABOZANTINIB S-MALATE
     Dosage: 40 MG, QD
     Dates: start: 20240827
  6. METOPROLOL [Concomitant]
     Active Substance: METOPROLOL
  7. UNSPECIFIED INGREDIENT [Concomitant]
     Active Substance: UNSPECIFIED INGREDIENT
  8. CITRICHOLESS [Concomitant]
     Indication: Prophylaxis
  9. PROBIOTICS NOS [Concomitant]
     Active Substance: PROBIOTICS NOS
  10. VITAMIN E [Concomitant]
     Active Substance: .ALPHA.-TOCOPHEROL
  11. IMODIUM [Concomitant]
     Active Substance: LOPERAMIDE HYDROCHLORIDE
  12. ASPIRIN [Concomitant]
     Active Substance: ASPIRIN
  13. ARTHRO 7 [Concomitant]
     Indication: Arthritis

REACTIONS (17)
  - Hypertension [Recovering/Resolving]
  - Fall [Not Recovered/Not Resolved]
  - Hyperhidrosis [Recovered/Resolved]
  - Haematological infection [Not Recovered/Not Resolved]
  - Syncope [Recovered/Resolved]
  - Hypotension [Unknown]
  - Dehydration [Unknown]
  - Dizziness [Not Recovered/Not Resolved]
  - Nausea [Not Recovered/Not Resolved]
  - Balance disorder [Not Recovered/Not Resolved]
  - Faeces discoloured [Recovered/Resolved]
  - Peripheral swelling [Not Recovered/Not Resolved]
  - Accidental overdose [Unknown]
  - Diarrhoea [Recovering/Resolving]
  - Intentional dose omission [Unknown]
  - Product dose omission issue [Unknown]
  - Off label use [Unknown]

NARRATIVE: CASE EVENT DATE: 20240718
